FAERS Safety Report 25737511 (Version 1)
Quarter: 2025Q3

REPORT INFORMATION
  Report Type: Spontaneous
  Country: JP (occurrence: JP)
  Receive Date: 20250828
  Receipt Date: 20250828
  Transmission Date: 20251021
  Serious: Yes (Other)
  Sender: TAKEDA
  Company Number: JP-TAKEDA-2025TJP004632

PATIENT
  Age: 9 Decade
  Sex: Female

DRUGS (1)
  1. FRUZAQLA [Suspect]
     Active Substance: FRUQUINTINIB
     Indication: Colorectal cancer

REACTIONS (4)
  - Colorectal cancer [Unknown]
  - Hypertension [Unknown]
  - Proteinuria [Unknown]
  - Asthenia [Unknown]
